FAERS Safety Report 9581831 (Version 1)
Quarter: 2013Q4

REPORT INFORMATION
  Report Type: Spontaneous
  Country: US (occurrence: US)
  Receive Date: 20131002
  Receipt Date: 20131002
  Transmission Date: 20140711
  Serious: No
  Sender: FDA-Public Use
  Company Number: US-009507513-1309USA005871

PATIENT
  Age: 32 Year
  Sex: Female

DRUGS (3)
  1. NUVARING [Suspect]
     Indication: CONTRACEPTION
     Dosage: UNK
     Route: 067
     Dates: start: 2010
  2. LEVOTHYROXINE SODIUM [Concomitant]
  3. PRILOSEC [Concomitant]

REACTIONS (1)
  - Menstruation irregular [Unknown]
